FAERS Safety Report 9942465 (Version 2)
Quarter: 2014Q1

REPORT INFORMATION
  Report Type: Spontaneous
  Country: US (occurrence: US)
  Receive Date: 20140303
  Receipt Date: 20140314
  Transmission Date: 20141002
  Serious: No
  Sender: FDA-Public Use
  Company Number: US-PFIZER INC-2014059092

PATIENT
  Sex: Female

DRUGS (1)
  1. LYRICA [Suspect]
     Dosage: UNK

REACTIONS (7)
  - Malaise [Unknown]
  - Gait disturbance [Unknown]
  - Movement disorder [Unknown]
  - Fibromyalgia [Unknown]
  - Emotional disorder [Unknown]
  - Anger [Unknown]
  - Drug effect incomplete [Unknown]
